FAERS Safety Report 16355919 (Version 1)
Quarter: 2019Q2

REPORT INFORMATION
  Report Type: Report from Study
  Country: US (occurrence: US)
  Receive Date: 20190526
  Receipt Date: 20190526
  Transmission Date: 20190711
  Serious: Yes (Hospitalization, Other)
  Sender: FDA-Public Use
  Company Number: US-BRISTOL-MYERS SQUIBB COMPANY-BMS-2018-093856

PATIENT
  Age: 73 Year
  Sex: Female
  Weight: 55.3 kg

DRUGS (13)
  1. MULTIVITAMIN [ASCORBIC ACID;CALCIUM PANTOTHENATE;ERGOCALCIFEROL;NICOTI [Concomitant]
     Active Substance: VITAMINS
     Indication: PRODUCT USED FOR UNKNOWN INDICATION
     Dosage: UNK
     Route: 065
  2. HAVRIX [Concomitant]
     Active Substance: HEPATITIS A VIRUS STRAIN HM175 ANTIGEN (FORMALDEHYDE INACTIVATED)
     Indication: PRODUCT USED FOR UNKNOWN INDICATION
     Dosage: UNK
     Route: 065
     Dates: start: 20180720
  3. ZOFRAN [Concomitant]
     Active Substance: ONDANSETRON HYDROCHLORIDE
     Indication: PRODUCT USED FOR UNKNOWN INDICATION
     Dosage: UNK
     Route: 065
     Dates: start: 20180925
  4. TYLENOL [Concomitant]
     Active Substance: ACETAMINOPHEN
     Indication: PRODUCT USED FOR UNKNOWN INDICATION
     Dosage: UNK
     Route: 065
  5. TEMOVATE [Concomitant]
     Active Substance: CLOBETASOL PROPIONATE
     Indication: PRODUCT USED FOR UNKNOWN INDICATION
     Dosage: UNK
     Route: 065
     Dates: start: 20180712
  6. IPI-549 [Suspect]
     Active Substance: INVESTIGATIONAL PRODUCT
     Indication: URETHRAL MELANOMA METASTATIC
     Dosage: 40 MG, QD
     Route: 048
     Dates: start: 20180914, end: 20180926
  7. GLUCOSAMINE + CHONDROITIN PLUS [CHONDROITIN SULFATE SODIUM;GLUCOSAMINE [Concomitant]
     Indication: PRODUCT USED FOR UNKNOWN INDICATION
     Dosage: UNK
     Route: 065
  8. ATROVENT [Concomitant]
     Active Substance: IPRATROPIUM BROMIDE
     Indication: PRODUCT USED FOR UNKNOWN INDICATION
     Dosage: UNK
     Route: 065
     Dates: start: 20180925
  9. AMOXICILLIN,CLAVULANIC ACID [Suspect]
     Active Substance: AMOXICILLIN\CLAVULANIC ACID
     Indication: INFECTION
     Dosage: 1 TAB, BID
     Route: 048
     Dates: start: 20180925, end: 20180927
  10. VITAMIN E [TOCOPHERYL ACID SUCCINATE] [Concomitant]
     Indication: PRODUCT USED FOR UNKNOWN INDICATION
     Dosage: UNK
     Route: 065
  11. NIVOLUMAB [Suspect]
     Active Substance: NIVOLUMAB
     Indication: URETHRAL MELANOMA METASTATIC
     Dosage: 240 MG, Q2WK
     Route: 042
     Dates: start: 20180914, end: 20180914
  12. CALCIUM MAGNESIUM + ZINC [CALCIUM;MAGNESIUM;ZINC] [Concomitant]
     Indication: PRODUCT USED FOR UNKNOWN INDICATION
     Dosage: UNK
     Route: 065
  13. COD LIVER OIL [Concomitant]
     Active Substance: COD LIVER OIL
     Indication: PRODUCT USED FOR UNKNOWN INDICATION
     Dosage: UNK
     Route: 065

REACTIONS (2)
  - Hypersensitivity [Recovered/Resolved]
  - Failure to thrive [Unknown]

NARRATIVE: CASE EVENT DATE: 201809
